FAERS Safety Report 17437535 (Version 1)
Quarter: 2020Q1

REPORT INFORMATION
  Report Type: Spontaneous
  Country: US (occurrence: US)
  Receive Date: 20200219
  Receipt Date: 20200219
  Transmission Date: 20200409
  Serious: Yes (Other)
  Sender: FDA-Public Use
  Company Number: US-SA-2020SA035017

PATIENT
  Sex: Male

DRUGS (1)
  1. ICY HOT WITH LIDOCAINE [Suspect]
     Active Substance: LIDOCAINE\MENTHOL
     Indication: BACK PAIN

REACTIONS (5)
  - Application site pain [Unknown]
  - Discomfort [Unknown]
  - Condition aggravated [Unknown]
  - Burn infection [Unknown]
  - Application site burn [Unknown]
